FAERS Safety Report 5883469-5 (Version None)
Quarter: 2008Q3

REPORT INFORMATION
  Report Type: 
  Country: None (occurrence: None)
  Receive Date: 20080915
  Receipt Date: 20080908
  Transmission Date: 20090109
  Serious: Yes (Other)
  Sender: FDA-Public Use
  Company Number: US-ROCHE-584975

PATIENT
  Age: 13 Year
  Sex: Female

DRUGS (2)
  1. ACCUTANE [Suspect]
     Indication: ACNE
     Route: 065
     Dates: start: 20060101
  2. ACCUTANE [Suspect]
     Route: 065
     Dates: start: 20080201, end: 20080701

REACTIONS (1)
  - EPIPHYSEAL DISORDER [None]
